FAERS Safety Report 6832502-2 (Version None)
Quarter: 2010Q3

REPORT INFORMATION
  Report Type: 
  Country: None (occurrence: None)
  Receive Date: 20100712
  Receipt Date: 20070313
  Transmission Date: 20110219
  Serious: No
  Sender: FDA-Public Use
  Company Number: US-PFIZER INC-2007020817

PATIENT
  Sex: Female
  Weight: 54.43 kg

DRUGS (2)
  1. CHANTIX [Suspect]
     Indication: SMOKING CESSATION THERAPY
     Dates: start: 20070210
  2. GUAIFENEX DM [Suspect]
     Indication: SINUSITIS
     Dates: start: 20070306

REACTIONS (8)
  - COUGH [None]
  - FLATULENCE [None]
  - GASTRITIS [None]
  - HYPERCHLORHYDRIA [None]
  - NAUSEA [None]
  - PAIN [None]
  - PARANASAL SINUS HYPERSECRETION [None]
  - SINUSITIS [None]
